FAERS Safety Report 11519864 (Version 1)
Quarter: 2015Q3

REPORT INFORMATION
  Report Type: Spontaneous
  Country: US (occurrence: None)
  Receive Date: 20150917
  Receipt Date: 20150917
  Transmission Date: 20151125
  Serious: Yes (Hospitalization)
  Sender: FDA-Public Use
  Company Number: None

PATIENT
  Age: 20 Year
  Sex: Female
  Weight: 67.5 kg

DRUGS (1)
  1. ERWINIA ASPARAGINASE [Suspect]
     Active Substance: ASPARAGINASE ERWINIA CHRYSANTHEMI
     Dosage: 1773 UNIT
     Dates: end: 20111003

REACTIONS (6)
  - Hypoaesthesia oral [None]
  - Cough [None]
  - Paraesthesia oral [None]
  - Pruritus [None]
  - Chest discomfort [None]
  - Blood pressure decreased [None]

NARRATIVE: CASE EVENT DATE: 20150907
